FAERS Safety Report 10109820 (Version 1)
Quarter: 2014Q2

REPORT INFORMATION
  Report Type: Spontaneous
  Country: IT (occurrence: IT)
  Receive Date: 20140425
  Receipt Date: 20140425
  Transmission Date: 20141212
  Serious: Yes (Hospitalization)
  Sender: FDA-Public Use
  Company Number: IT-BAYER-2014-056267

PATIENT
  Age: 80 Year
  Sex: Male

DRUGS (1)
  1. CIPROXIN [Suspect]
     Indication: DIVERTICULITIS
     Dosage: DAILY DOSE 1000 MG
     Route: 048
     Dates: start: 20140325, end: 20140401

REACTIONS (1)
  - Drug reaction with eosinophilia and systemic symptoms [Recovering/Resolving]
